FAERS Safety Report 7132189-8 (Version None)
Quarter: 2010Q4

REPORT INFORMATION
  Report Type: 
  Country: None (occurrence: None)
  Receive Date: 20101202
  Receipt Date: 20101122
  Transmission Date: 20110411
  Serious: Yes (Hospitalization, Other)
  Sender: FDA-Public Use
  Company Number: US-TEVA-256405USA

PATIENT
  Age: 20 Month
  Sex: Female

DRUGS (1)
  1. VALPROIC ACID [Suspect]

REACTIONS (2)
  - ACCIDENTAL OVERDOSE [None]
  - MULTI-ORGAN FAILURE [None]
